FAERS Safety Report 5325087-3 (Version None)
Quarter: 2007Q2

REPORT INFORMATION
  Report Type: 
  Country: None (occurrence: None)
  Receive Date: 20070515
  Receipt Date: 20070424
  Transmission Date: 20071010
  Serious: Yes (Death, Hospitalization)
  Sender: FDA-Public Use
  Company Number: BE-ROCHE-493126

PATIENT
  Age: 47 Year
  Sex: Female
  Weight: 56 kg

DRUGS (4)
  1. PEG-INTERFERON ALFA 2A (RO 25-8310) [Suspect]
     Route: 058
     Dates: start: 20060504, end: 20070405
  2. PEG-INTERFERON ALFA 2A (RO 25-8310) [Suspect]
     Route: 058
     Dates: start: 20070419, end: 20070422
  3. KIVEXA [Concomitant]
     Route: 065
     Dates: start: 20060524
  4. REYATAZ [Concomitant]
     Route: 065
     Dates: start: 20060524

REACTIONS (1)
  - ENCEPHALITIS [None]
